FAERS Safety Report 21452515 (Version 1)
Quarter: 2022Q4

REPORT INFORMATION
  Report Type: Spontaneous
  Country: DE (occurrence: None)
  Receive Date: 20221013
  Receipt Date: 20221013
  Transmission Date: 20230113
  Serious: Yes (Hospitalization)
  Sender: FDA-Public Use
  Company Number: DE-ROCHE-3194551

PATIENT
  Sex: Female

DRUGS (1)
  1. OCREVUS [Suspect]
     Active Substance: OCRELIZUMAB
     Indication: Multiple sclerosis
     Dosage: ONGOING
     Route: 065

REACTIONS (6)
  - Multiple sclerosis relapse [Unknown]
  - Pain [Unknown]
  - Vomiting [Unknown]
  - Influenza [Unknown]
  - Fatigue [Unknown]
  - Mood altered [Unknown]

NARRATIVE: CASE EVENT DATE: 20220101
